FAERS Safety Report 19812336 (Version 2)
Quarter: 2021Q4

REPORT INFORMATION
  Report Type: Other
  Country: CA (occurrence: CA)
  Receive Date: 20210910
  Receipt Date: 20211019
  Transmission Date: 20220303
  Serious: Yes (Hospitalization)
  Sender: FDA-Public Use
  Company Number: CA-CELLTRION INC.-2021CA012059

PATIENT

DRUGS (7)
  1. TRUXIMA [Suspect]
     Active Substance: RITUXIMAB-ABBS
     Indication: Rheumatoid arthritis
     Dosage: 1000 MILLIGRAM
     Route: 042
  2. ATIVAN [Concomitant]
     Active Substance: LORAZEPAM
  3. FOLIC ACID [Concomitant]
     Active Substance: FOLIC ACID
  4. GRAVOL [Concomitant]
     Active Substance: DIMENHYDRINATE
  5. OMEGA - 3 [Concomitant]
     Route: 065
  6. PREDNISONE [Concomitant]
     Active Substance: PREDNISONE
  7. TYLENOL [Concomitant]
     Active Substance: ACETAMINOPHEN

REACTIONS (3)
  - Localised infection [Unknown]
  - Condition aggravated [Unknown]
  - Intentional dose omission [Unknown]
